FAERS Safety Report 9431935 (Version 2)
Quarter: 2013Q3

REPORT INFORMATION
  Report Type: Spontaneous
  Country: IT (occurrence: IT)
  Receive Date: 20130731
  Receipt Date: 20130917
  Transmission Date: 20140515
  Serious: Yes (Hospitalization)
  Sender: FDA-Public Use
  Company Number: IT-BRISTOL-MYERS SQUIBB COMPANY-19144542

PATIENT
  Age: 73 Year
  Sex: Male

DRUGS (2)
  1. COUMADIN TABS 5 MG [Suspect]
     Indication: CARDIAC DISORDER
     Route: 048
     Dates: start: 20120101, end: 20130709
  2. CARDIOASPIRIN [Suspect]
     Indication: PROPHYLAXIS
     Dosage: 100 MG TAB DOSAGE/1/UNIT
     Route: 048
     Dates: start: 20120101, end: 20130709

REACTIONS (3)
  - Renal pain [Recovering/Resolving]
  - Haematuria [Recovering/Resolving]
  - International normalised ratio increased [Recovering/Resolving]
